FAERS Safety Report 8229165-0 (Version None)
Quarter: 2012Q1

REPORT INFORMATION
  Report Type: 
  Country: None (occurrence: None)
  Receive Date: 20120322
  Receipt Date: 20120314
  Transmission Date: 20120608
  Serious: Yes (Other)
  Sender: FDA-Public Use
  Company Number: CA-JNJFOC-20120307338

PATIENT
  Sex: Male
  Weight: 75 kg

DRUGS (5)
  1. UNSPECIFIED BLOOD PRESSURE MEDS [Concomitant]
     Route: 065
  2. HYDROCHLOROTHIAZIDE [Concomitant]
     Route: 065
  3. ASPIRIN [Concomitant]
     Route: 065
  4. REMICADE [Suspect]
     Indication: RHEUMATOID ARTHRITIS
     Route: 042
     Dates: start: 20040901
  5. LEFLUNOMIDE [Concomitant]
     Route: 065

REACTIONS (4)
  - FLUID RETENTION [None]
  - WEIGHT INCREASED [None]
  - DYSPNOEA [None]
  - ASTHENIA [None]
